FAERS Safety Report 20076284 (Version 2)
Quarter: 2021Q4

REPORT INFORMATION
  Report Type: Spontaneous
  Country: JP (occurrence: JP)
  Receive Date: 20211116
  Receipt Date: 20211126
  Transmission Date: 20220303
  Serious: Yes (Hospitalization)
  Sender: FDA-Public Use
  Company Number: JP-NBI-S202100358BIPI

PATIENT
  Age: 72 Year
  Sex: Male

DRUGS (1)
  1. OFEV [Suspect]
     Active Substance: NINTEDANIB
     Indication: Idiopathic interstitial pneumonia
     Dates: start: 201907

REACTIONS (5)
  - Infection [Recovered/Resolved]
  - Impaired healing [Recovered/Resolved]
  - Radiation mucositis [Unknown]
  - Dermatitis [Unknown]
  - Mucosal inflammation [Unknown]
